FAERS Safety Report 5904272-3 (Version None)
Quarter: 2008Q3

REPORT INFORMATION
  Report Type: 
  Country: None (occurrence: None)
  Receive Date: 20080930
  Receipt Date: 20080930
  Transmission Date: 20090109
  Serious: Yes (Life-Threatening)
  Sender: FDA-Public Use
  Company Number: None

PATIENT
  Age: 46 Year
  Sex: Male
  Weight: 98.9 kg

DRUGS (1)
  1. VALPROIC ACID [Suspect]
     Indication: CONVULSION
     Dosage: 3000 MG BID PO
     Route: 048
     Dates: start: 20080505, end: 20080609

REACTIONS (2)
  - DIARRHOEA [None]
  - THROMBOCYTOPENIA [None]
